FAERS Safety Report 7801945-2 (Version None)
Quarter: 2011Q4

REPORT INFORMATION
  Report Type: 
  Country: None (occurrence: None)
  Receive Date: 20111007
  Receipt Date: 20111007
  Transmission Date: 20120403
  Serious: Yes (Hospitalization)
  Sender: FDA-Public Use
  Company Number: None

PATIENT
  Age: 18 Year
  Sex: Female
  Weight: 50 kg

DRUGS (2)
  1. ROMIPLOSTIM [Suspect]
     Indication: LYMPHOPROLIFERATIVE DISORDER
     Dosage: 500MCG
     Route: 058
     Dates: start: 20110413, end: 20110927
  2. ROMIPLOSTIM [Suspect]
     Indication: THROMBOCYTOPENIA
     Dosage: 500MCG
     Route: 058
     Dates: start: 20110413, end: 20110927

REACTIONS (1)
  - HEADACHE [None]
